FAERS Safety Report 8406008-3 (Version None)
Quarter: 2012Q2

REPORT INFORMATION
  Report Type: 
  Country: None (occurrence: None)
  Receive Date: 20120323
  Receipt Date: 20110112
  Transmission Date: 20120825
  Serious: Yes (Other)
  Sender: FDA-Public Use
  Company Number: 163-21880-10080565

PATIENT
  Age: 59 Year
  Sex: Male

DRUGS (13)
  1. FENTANYL [Concomitant]
  2. BACTRIM DS [Concomitant]
  3. TRAZODONE HCL [Concomitant]
  4. OXYCODONE HCL [Concomitant]
  5. ELAVIL [Concomitant]
  6. ACYCLOVIR [Concomitant]
  7. REVLIMID [Suspect]
     Indication: MULTIPLE MYELOMA
     Dosage: 10 MG, QOD, PO
     Route: 048
     Dates: start: 20110110
  8. CELEXA [Concomitant]
  9. NEURONTIN [Concomitant]
  10. SENNA (SENNA) [Concomitant]
  11. LORATADINE [Concomitant]
  12. AREDIA [Concomitant]
  13. VELCADE [Concomitant]

REACTIONS (1)
  - PLATELET COUNT DECREASED [None]
